FAERS Safety Report 8127879-4 (Version None)
Quarter: 2012Q1

REPORT INFORMATION
  Report Type: 
  Country: None (occurrence: None)
  Receive Date: 20120210
  Receipt Date: 20111115
  Transmission Date: 20120608
  Serious: No
  Sender: FDA-Public Use
  Company Number: US-GLAXOSMITHKLINE-A0954744A

PATIENT
  Age: 67 Year
  Sex: Male

DRUGS (3)
  1. TAMSULOSIN HCL [Concomitant]
  2. PAXIL [Suspect]
     Indication: DEPRESSION
     Dosage: 30MG PER DAY
     Route: 048
     Dates: start: 20100101
  3. FLONASE [Concomitant]

REACTIONS (1)
  - TINNITUS [None]
